FAERS Safety Report 4273503-0 (Version None)
Quarter: 2004Q1

REPORT INFORMATION
  Report Type: 
  Country: None (occurrence: None)
  Receive Date: 20040119
  Receipt Date: 20040102
  Transmission Date: 20041129
  Serious: Yes (Life-Threatening)
  Sender: FDA-Public Use
  Company Number: FR-GLAXOSMITHKLINE-B0319340A

PATIENT
  Age: 47 Year
  Sex: Female

DRUGS (7)
  1. LAMICTAL [Suspect]
     Indication: EPILEPSY
     Dosage: 150MG PER DAY
     Route: 048
     Dates: start: 20010313, end: 20010425
  2. SABRIL [Suspect]
     Indication: EPILEPSY
     Dosage: 1UNIT PER DAY
     Dates: end: 20010425
  3. MOPRAL [Suspect]
     Dosage: 20MG PER DAY
     Route: 048
     Dates: end: 20010425
  4. HALDOL [Suspect]
     Dosage: 7MG PER DAY
     Route: 048
     Dates: end: 20010425
  5. GARDENAL [Suspect]
     Indication: EPILEPSY
     Dosage: 10MG PER DAY
     Route: 048
     Dates: end: 20010425
  6. SERESTA [Suspect]
     Dosage: 10MG PER DAY
     Route: 048
     Dates: end: 20010425
  7. RIVOTRIL IV [Concomitant]

REACTIONS (11)
  - BLOOD PHOSPHORUS INCREASED [None]
  - C-REACTIVE PROTEIN INCREASED [None]
  - CHOLESTASIS [None]
  - GAMMA-GLUTAMYLTRANSFERASE INCREASED [None]
  - GENERAL PHYSICAL HEALTH DETERIORATION [None]
  - HEPATIC FAILURE [None]
  - INTERNATIONAL NORMALISED RATIO INCREASED [None]
  - MOUTH HAEMORRHAGE [None]
  - PROTHROMBIN LEVEL DECREASED [None]
  - PYREXIA [None]
  - SOMNOLENCE [None]
